FAERS Safety Report 23947832 (Version 1)
Quarter: 2024Q2

REPORT INFORMATION
  Report Type: Spontaneous
  Country: GB (occurrence: GB)
  Receive Date: 20240606
  Receipt Date: 20240606
  Transmission Date: 20240716
  Serious: Yes (Other)
  Sender: FDA-Public Use
  Company Number: None

PATIENT
  Age: 72 Year
  Sex: Female
  Weight: 84 kg

DRUGS (17)
  1. BEMPEDOIC ACID\EZETIMIBE [Suspect]
     Active Substance: BEMPEDOIC ACID\EZETIMIBE
     Indication: Hypertension
     Dosage: UNK
     Route: 065
     Dates: start: 20240529
  2. NICORETTE [Concomitant]
     Active Substance: NICOTINE
     Indication: Product used for unknown indication
     Dosage: UNK (USE AS DIRECTED)
     Route: 065
     Dates: start: 20240520, end: 20240521
  3. DOXYCYCLINE [Concomitant]
     Active Substance: DOXYCYCLINE\DOXYCYCLINE HYCLATE
     Indication: Product used for unknown indication
     Dosage: 2 DF, BID (TWO CAPSULES DAILY)
     Route: 065
     Dates: start: 20240325, end: 20240401
  4. VALPROATE SODIUM [Concomitant]
     Active Substance: VALPROATE SODIUM
     Indication: Product used for unknown indication
     Dosage: UNK (TAKE 4 IN THE MORNING, 3 AT LUNCH AND 4 AT NIGH...)
     Route: 065
     Dates: start: 20231201
  5. BEMPEDOIC ACID [Concomitant]
     Active Substance: BEMPEDOIC ACID
     Indication: Ill-defined disorder
     Dosage: 1 DF, QD (TAKE ONE DAILY)
     Route: 065
     Dates: start: 20240517, end: 20240529
  6. ASPIRIN [Concomitant]
     Active Substance: ASPIRIN
     Indication: Product used for unknown indication
     Dosage: 1 DF, QD (1 EVERY DAY BLOOD)
     Route: 065
     Dates: start: 20231201
  7. CALCEOS [Concomitant]
     Active Substance: CALCIUM CARBONATE\CHOLECALCIFEROL
     Indication: Product used for unknown indication
     Dosage: 2 DF, QD (CHEW OR SUCK BONES)
     Route: 065
     Dates: start: 20231201
  8. CEPHRADINE [Concomitant]
     Active Substance: CEPHRADINE
     Indication: Antibiotic therapy
     Dosage: 1 DF, QD (ANTIBIOTIC)
     Route: 065
     Dates: start: 20231201
  9. CONOTRANE [DIMETICONE;HYDRARGAPHEN] [Concomitant]
     Indication: Product used for unknown indication
     Dosage: UNK (USE AS A BARRIER CREAM PROTECT THE SKIN)
     Route: 065
     Dates: start: 20231201
  10. FOLIC ACID [Concomitant]
     Active Substance: FOLIC ACID
     Indication: Product used for unknown indication
     Dosage: 1 DF, QD
     Route: 065
     Dates: start: 20231201
  11. HYDROCORTISONE [Concomitant]
     Active Substance: HYDROCORTISONE
     Indication: Product used for unknown indication
     Dosage: UNK UNK, BID (APPLY TWICE DAILY)
     Route: 065
     Dates: start: 20231201
  12. LOSARTAN [Concomitant]
     Active Substance: LOSARTAN
     Indication: Blood pressure abnormal
     Dosage: 1 DF, QD (BLOOD PRESSURE)
     Route: 065
     Dates: start: 20231201
  13. ACETAMINOPHEN [Concomitant]
     Active Substance: ACETAMINOPHEN
     Indication: Pain
     Dosage: 2 DF, QID
     Route: 065
     Dates: start: 20231201
  14. CHOLESTYRAMINE [Concomitant]
     Active Substance: CHOLESTYRAMINE
     Indication: Product used for unknown indication
     Dosage: 1 DF, QD (AT NIGHT)
     Route: 065
     Dates: start: 20231201
  15. RISPERIDONE [Concomitant]
     Active Substance: RISPERIDONE
     Indication: Product used for unknown indication
     Dosage: 1 DF, QD (AT NIGHT MOOD)
     Route: 065
     Dates: start: 20231201
  16. SOLIFENACIN [Concomitant]
     Active Substance: SOLIFENACIN
     Indication: Product used for unknown indication
     Dosage: 1 DF, QD (BLADDER)
     Route: 065
     Dates: start: 20231201
  17. PARAFFIN [Concomitant]
     Active Substance: PARAFFIN
     Indication: Product used for unknown indication
     Dosage: UNK (APPLY TO LEGS 2-3 TIMES PER DAY AND ANY OTHER D...)
     Route: 065
     Dates: start: 20231227

REACTIONS (2)
  - Insomnia [Recovered/Resolved]
  - Off label use [Unknown]

NARRATIVE: CASE EVENT DATE: 20240529
